FAERS Safety Report 7636316 (Version 4)
Quarter: 2013Q2

REPORT INFORMATION
  Report Type: Spontaneous
  Country: US (occurrence: US)
  Receive Date: 20101021
  Receipt Date: 20130412
  Transmission Date: 20140414
  Serious: Yes (Hospitalization, Other)
  Sender: FDA-Public Use
  Company Number: US-ROCHE-724622

PATIENT
  Age: 21 Year
  Sex: Male
  Weight: 77.1 kg

DRUGS (1)
  1. ACCUTANE [Suspect]
     Indication: ACNE
     Route: 065
     Dates: start: 19971203, end: 19980424

REACTIONS (10)
  - Crohn^s disease [Unknown]
  - Small intestinal perforation [Unknown]
  - Ileal stenosis [Unknown]
  - Small intestinal obstruction [Unknown]
  - Inflammatory bowel disease [Unknown]
  - Anaemia [Recovered/Resolved]
  - Intestinal obstruction [Unknown]
  - Blood triglycerides increased [Unknown]
  - Irritable bowel syndrome [Unknown]
  - Osteopenia [Recovered/Resolved]
